FAERS Safety Report 24184945 (Version 5)
Quarter: 2025Q1

REPORT INFORMATION
  Report Type: Spontaneous
  Country: JP (occurrence: JP)
  Receive Date: 20240807
  Receipt Date: 20250320
  Transmission Date: 20250408
  Serious: Yes (Hospitalization, Disabling)
  Sender: EISAI
  Company Number: JP-Eisai-202405473_LEN-RCC_P_1

PATIENT
  Age: 72 Year
  Sex: Male

DRUGS (6)
  1. LENVATINIB [Suspect]
     Active Substance: LENVATINIB
     Indication: Renal cell carcinoma
     Route: 048
     Dates: start: 20240705, end: 202407
  2. LENVATINIB [Suspect]
     Active Substance: LENVATINIB
     Dates: start: 20240712, end: 20240721
  3. LENVATINIB [Suspect]
     Active Substance: LENVATINIB
  4. LENVATINIB [Suspect]
     Active Substance: LENVATINIB
  5. LENVATINIB [Suspect]
     Active Substance: LENVATINIB
     Dates: start: 20240920, end: 20241029
  6. PEMBROLIZUMAB [Suspect]
     Active Substance: PEMBROLIZUMAB
     Indication: Renal cell carcinoma
     Route: 041
     Dates: start: 20240705, end: 20241129

REACTIONS (4)
  - Palmar-plantar erythrodysaesthesia syndrome [Recovered/Resolved]
  - Arthritis bacterial [Unknown]
  - Decreased appetite [Unknown]
  - Rash [Unknown]

NARRATIVE: CASE EVENT DATE: 20240101
